FAERS Safety Report 14175409 (Version 1)
Quarter: 2017Q4

REPORT INFORMATION
  Report Type: Spontaneous
  Country: CN (occurrence: CN)
  Receive Date: 20171109
  Receipt Date: 20171109
  Transmission Date: 20180321
  Serious: Yes (Life-Threatening)
  Sender: FDA-Public Use
  Company Number: CN-BRACCO-2017CN04967

PATIENT
  Age: 52 Year
  Sex: Female

DRUGS (1)
  1. MULTIHANCE [Suspect]
     Active Substance: GADOBENATE DIMEGLUMINE
     Indication: NUCLEAR MAGNETIC RESONANCE IMAGING
     Dosage: 15 ML, SINGLE
     Route: 042
     Dates: start: 20170913, end: 20170913

REACTIONS (6)
  - Pallor [Recovering/Resolving]
  - Urinary incontinence [Recovering/Resolving]
  - Hyperhidrosis [Recovering/Resolving]
  - Apathy [Recovering/Resolving]
  - Cold sweat [Recovering/Resolving]
  - Pulse absent [Recovering/Resolving]

NARRATIVE: CASE EVENT DATE: 20170913
